FAERS Safety Report 12211106 (Version 1)
Quarter: 2016Q1

REPORT INFORMATION
  Report Type: Spontaneous
  Country: US (occurrence: None)
  Receive Date: 20160324
  Receipt Date: 20160324
  Transmission Date: 20160526
  Serious: Yes (Hospitalization)
  Sender: FDA-Public Use
  Company Number: None

PATIENT
  Age: 10 Year
  Sex: Male

DRUGS (20)
  1. TOBRAMYCIN. [Suspect]
     Active Substance: TOBRAMYCIN
     Indication: CYSTIC FIBROSIS
     Route: 055
  2. ALBUTEROL. [Concomitant]
     Active Substance: ALBUTEROL
  3. AMOXICILLIN. [Concomitant]
     Active Substance: AMOXICILLIN
  4. OMEPRAZOLE. [Concomitant]
     Active Substance: OMEPRAZOLE
  5. D-VI-SOL LIQ [Concomitant]
  6. FLOVENT HFA AER [Concomitant]
  7. PREDNISOLONE. [Concomitant]
     Active Substance: PREDNISOLONE
  8. FIRST-OMEPRA SUS [Concomitant]
  9. PROMETHAZINE [Concomitant]
     Active Substance: PROMETHAZINE\PROMETHAZINE HYDROCHLORIDE
  10. Q-PAP [Concomitant]
     Active Substance: ACETAMINOPHEN
  11. TIZANIDINE. [Concomitant]
     Active Substance: TIZANIDINE
  12. BACLOFEN. [Concomitant]
     Active Substance: BACLOFEN
  13. BISAC-EVAC SUP [Concomitant]
  14. CEFDINIR. [Concomitant]
     Active Substance: CEFDINIR
  15. CLONAZEPAM. [Concomitant]
     Active Substance: CLONAZEPAM
  16. LEVETIRACETA SOL [Concomitant]
  17. DESITIN CRE [Concomitant]
  18. TRIAMCINOLON CRE [Concomitant]
  19. VITAMIN D3 [Concomitant]
     Active Substance: CHOLECALCIFEROL
  20. ANTIPY/BENZO SOL OTIC [Concomitant]

REACTIONS (1)
  - Pseudomonas infection [None]

NARRATIVE: CASE EVENT DATE: 20160314
